FAERS Safety Report 12142920 (Version 1)
Quarter: 2016Q1

REPORT INFORMATION
  Report Type: Spontaneous
  Country: US (occurrence: US)
  Receive Date: 20160303
  Receipt Date: 20160303
  Transmission Date: 20160526
  Serious: Yes (Hospitalization)
  Sender: FDA-Public Use
  Company Number: US-TEVA-639130USA

PATIENT
  Age: 50 Year
  Sex: Male
  Weight: 131.66 kg

DRUGS (9)
  1. SYNRIBO [Suspect]
     Active Substance: OMACETAXINE MEPESUCCINATE
     Indication: CHRONIC MYELOID LEUKAEMIA
     Route: 065
     Dates: start: 20160130
  2. MORPHINE [Concomitant]
     Active Substance: MORPHINE
  3. FISH OIL [Concomitant]
     Active Substance: FISH OIL
  4. MVI [Concomitant]
     Active Substance: VITAMINS
  5. GABAPENTIN. [Concomitant]
     Active Substance: GABAPENTIN
  6. AMLODIPINE [Concomitant]
     Active Substance: AMLODIPINE BESYLATE
  7. LOSARTAN. [Concomitant]
     Active Substance: LOSARTAN
  8. OXYCODONE [Concomitant]
     Active Substance: OXYCODONE
  9. ACYCLOVR [Concomitant]
     Dosage: HOME ADMINISTRATION

REACTIONS (1)
  - Febrile neutropenia [Recovering/Resolving]

NARRATIVE: CASE EVENT DATE: 20160216
